FAERS Safety Report 18713946 (Version 2)
Quarter: 2021Q1

REPORT INFORMATION
  Report Type: Spontaneous
  Country: GR (occurrence: GR)
  Receive Date: 20210107
  Receipt Date: 20210301
  Transmission Date: 20210419
  Serious: Yes (Other)
  Sender: FDA-Public Use
  Company Number: GR-BAUSCH-BL-2020-038845

PATIENT
  Age: 28 Year
  Sex: Male

DRUGS (17)
  1. TEMOZOLOMIDE. [Suspect]
     Active Substance: TEMOZOLOMIDE
     Route: 048
     Dates: start: 201909
  2. TEMOZOLOMIDE. [Suspect]
     Active Substance: TEMOZOLOMIDE
     Dosage: MONTHLY TEMOZOLOMIDE X 5 DAYS (RECYCLED EVERY 28 DAYS)
     Route: 065
     Dates: end: 201809
  3. IRINOTECAN [Concomitant]
     Active Substance: IRINOTECAN
     Dosage: (ON DAYS 1?5) IN THE THIRD COURSE
     Dates: start: 2019
  4. DEXAMETHASONE. [Suspect]
     Active Substance: DEXAMETHASONE
     Indication: GLIOBLASTOMA MULTIFORME
     Route: 048
     Dates: start: 2019, end: 202001
  5. IRINOTECAN [Concomitant]
     Active Substance: IRINOTECAN
     Indication: DISEASE RECURRENCE
     Dosage: DILUTED IN 5% DEXTROSE SOLUTION, ADMINISTERED INTRAVENOUSLY OVER 60 MIN
     Route: 042
     Dates: start: 201909
  6. DIMETINDENE MALEATE [Concomitant]
     Active Substance: DIMETHINDENE MALEATE
     Indication: PRODUCT USED FOR UNKNOWN INDICATION
     Route: 042
     Dates: start: 201909
  7. VINCRISTINE [Concomitant]
     Active Substance: VINCRISTINE
     Indication: GLIOBLASTOMA MULTIFORME
     Dosage: 2 MG ON DAY 1, CYCLICAL
     Dates: start: 201909
  8. BEVACIZUMAB. [Concomitant]
     Active Substance: BEVACIZUMAB
     Indication: GLIOBLASTOMA MULTIFORME
     Dosage: 15 MG/KG ON DAY 1, CYCLICAL
     Dates: start: 201909
  9. APREPITANT. [Concomitant]
     Active Substance: APREPITANT
     Indication: ANTIEMETIC SUPPORTIVE CARE
     Dosage: 125 MG O.D. ON DAY 1 FOLLOWED BY 80 MG O.D. ON DAYS 2?5, CYCLICAL
     Dates: start: 201909
  10. LOPERAMIDE [Concomitant]
     Active Substance: LOPERAMIDE
     Indication: PROPHYLAXIS AGAINST DIARRHOEA
     Dates: start: 201909
  11. IRINOTECAN [Concomitant]
     Active Substance: IRINOTECAN
     Indication: GLIOBLASTOMA MULTIFORME
     Dosage: INITIALLY AT 30 MG/M2 (WITH A PLAN OF DOSE ESCALATION UP TO 50 MG/M2 IN THE ABSENCE OF TOXICITY
     Dates: start: 201909
  12. VINCRISTINE [Concomitant]
     Active Substance: VINCRISTINE
     Indication: DISEASE RECURRENCE
     Dosage: DILUTED IN 50 ML SODIUM CHLORIDE 0.9% AND INFUSED INTRAVENOUSLY OVER 10 MIN ON DAY 1
     Route: 042
     Dates: start: 201909
  13. TEMOZOLOMIDE. [Suspect]
     Active Substance: TEMOZOLOMIDE
     Indication: GLIOBLASTOMA MULTIFORME
     Dosage: (RECYCLED EVERY 28 DAYS)
     Route: 065
     Dates: end: 201803
  14. BEVACIZUMAB. [Concomitant]
     Active Substance: BEVACIZUMAB
     Indication: DISEASE RECURRENCE
     Dosage: MONOTHERAPY
     Dates: start: 2020
  15. PALONOSETRON. [Concomitant]
     Active Substance: PALONOSETRON HYDROCHLORIDE
     Indication: ANTIEMETIC SUPPORTIVE CARE
     Dosage: 0.25 MG (DAYS 1, 3, AND 5), CYCLICAL
     Route: 048
     Dates: start: 201909
  16. DEXAMETHASONE. [Suspect]
     Active Substance: DEXAMETHASONE
     Indication: DISEASE RECURRENCE
     Dosage: GRADUALLY DECREASED
     Route: 048
     Dates: start: 202001, end: 202006
  17. CEFIXIME. [Concomitant]
     Active Substance: CEFIXIME
     Indication: PROPHYLAXIS
     Dosage: 400 MG OD BETWEEN DAYS ?2 AND PLUS 10 OF EACH COURSE
     Route: 048
     Dates: start: 201909

REACTIONS (1)
  - Hepatotoxicity [Recovering/Resolving]

NARRATIVE: CASE EVENT DATE: 202001
